FAERS Safety Report 6089498-3 (Version None)
Quarter: 2009Q1

REPORT INFORMATION
  Report Type: 
  Country: None (occurrence: None)
  Receive Date: 20090219
  Receipt Date: 20090115
  Transmission Date: 20090719
  Serious: Yes (Other)
  Sender: FDA-Public Use
  Company Number: 2009EU000285

PATIENT
  Age: 43 Year
  Sex: Female

DRUGS (7)
  1. PROGRAF [Suspect]
     Dosage: 2.5 MG, UID/QD, ORAL
     Route: 048
     Dates: start: 20050822
  2. RENAGEL [Suspect]
     Dosage: 4800 MG, IUD/QD, ORAL
     Route: 048
     Dates: start: 20080206, end: 20080414
  3. INEXIUM (ESOMEPRAZOLE SODIUM) [Concomitant]
  4. ANAFRANIL [Concomitant]
  5. GUTRON (MIDODRINE HYDROCHLORIDE) [Concomitant]
  6. MIMPARA (CINACALCET HYDROCHLORIDE) [Concomitant]
  7. LEVOTHYROXINE SODIUM [Concomitant]

REACTIONS (10)
  - CHOLESTASIS [None]
  - CYTOLYTIC HEPATITIS [None]
  - CYTOMEGALOVIRUS ANTIBODY POSITIVE [None]
  - DRUG INTERACTION [None]
  - DRUG LEVEL DECREASED [None]
  - EPSTEIN-BARR VIRUS ANTIBODY POSITIVE [None]
  - HEPATIC STEATOSIS [None]
  - HERPES ZOSTER [None]
  - HUMAN HERPES VIRUS 6 SEROLOGY POSITIVE [None]
  - LIVER TRANSPLANT REJECTION [None]
